FAERS Safety Report 8896463 (Version 1)
Quarter: 2012Q4

REPORT INFORMATION
  Report Type: Spontaneous
  Country: CN (occurrence: None)
  Receive Date: 20121102
  Receipt Date: 20121102
  Transmission Date: 20130627
  Serious: Yes (Other)
  Sender: FDA-Public Use
  Company Number: 2012P1062291

PATIENT

DRUGS (1)
  1. CEFTAZIDIME [Suspect]
     Route: 042
     Dates: start: 20111026, end: 20111028

REACTIONS (1)
  - Anaphylactoid reaction [None]
